FAERS Safety Report 19533803 (Version 1)
Quarter: 2021Q3

REPORT INFORMATION
  Report Type: Report from Study
  Country: BR (occurrence: BR)
  Receive Date: 20210713
  Receipt Date: 20210713
  Transmission Date: 20211014
  Serious: Yes (Other)
  Sender: FDA-Public Use
  Company Number: NVSC2021BR153107

PATIENT
  Age: 80 Year
  Sex: Female

DRUGS (3)
  1. NAPRIX A [Concomitant]
     Indication: PRODUCT USED FOR UNKNOWN INDICATION
     Dosage: UNK (LIBBS MANUFACTURER)
     Route: 065
  2. GALVUS MET [Suspect]
     Active Substance: METFORMIN HYDROCHLORIDE\VILDAGLIPTIN
     Indication: PRODUCT USED FOR UNKNOWN INDICATION
     Dosage: UNK (AROUND MORE THAN 5, 6 YEARS)
     Route: 065
  3. SOMALGIN CARDIO [Concomitant]
     Active Substance: ASPIRIN\DIHYDROXYALUMINUM AMINOACETATE ANHYDROUS\MAGNESIUM CARBONATE
     Indication: PRODUCT USED FOR UNKNOWN INDICATION
     Dosage: UNK
     Route: 065

REACTIONS (3)
  - Hypoacusis [Unknown]
  - COVID-19 [Recovered/Resolved]
  - Deafness [Recovering/Resolving]

NARRATIVE: CASE EVENT DATE: 202009
